FAERS Safety Report 4450517-9 (Version None)
Quarter: 2004Q3

REPORT INFORMATION
  Report Type: 
  Country: None (occurrence: None)
  Receive Date: 20040914
  Receipt Date: 20040830
  Transmission Date: 20050211
  Serious: Yes (Disabling)
  Sender: FDA-Public Use
  Company Number: 200407925

PATIENT
  Age: 39 Year
  Sex: Male

DRUGS (3)
  1. BOTOX [Suspect]
     Indication: STRABISMUS
     Dates: start: 20030521, end: 20030521
  2. KLONOPIN [Concomitant]
  3. ARTIFICIAL TEARS [Concomitant]

REACTIONS (6)
  - DIPLOPIA [None]
  - EYELID PTOSIS [None]
  - GAZE PALSY [None]
  - IMPAIRED WORK ABILITY [None]
  - LACRIMATION DECREASED [None]
  - OPHTHALMOPLEGIA [None]
